FAERS Safety Report 8520977-2 (Version None)
Quarter: 2012Q3

REPORT INFORMATION
  Report Type: 
  Country: None (occurrence: None)
  Receive Date: 20120719
  Receipt Date: 20120711
  Transmission Date: 20120928
  Serious: Yes (Hospitalization)
  Sender: FDA-Public Use
  Company Number: FR-GE HEALTHCARE MEDICAL DIAGNOSTICS-VISP-NO-1207S-0303

PATIENT
  Age: 88 Year
  Sex: Male

DRUGS (6)
  1. VISIPAQUE [Suspect]
     Indication: PULMONARY EMBOLISM
     Route: 065
     Dates: start: 20120620, end: 20120620
  2. BISOPROLOL FUMARATE [Concomitant]
  3. COVERSYL ARGININE [Concomitant]
  4. SINTROM [Concomitant]
  5. ALFUZOSIN HYDROCHLORIDE [Concomitant]
  6. CALCIPARINE [Concomitant]

REACTIONS (3)
  - PURPURA [None]
  - TOXIC SKIN ERUPTION [None]
  - RASH PAPULAR [None]
